FAERS Safety Report 6102899-X (Version None)
Quarter: 2009Q1

REPORT INFORMATION
  Report Type: 
  Country: None (occurrence: None)
  Receive Date: 20090303
  Receipt Date: 20090303
  Transmission Date: 20090719
  Serious: No
  Sender: FDA-Public Use
  Company Number: None

PATIENT
  Age: 43 Year
  Sex: Female
  Weight: 83.9154 kg

DRUGS (1)
  1. BUPROPION HCL [Suspect]
     Dosage: 300 MG 1 TABLET DAY PO
     Route: 048
     Dates: start: 20090120, end: 20090302

REACTIONS (5)
  - HEADACHE [None]
  - MIGRAINE [None]
  - MUSCLE DISORDER [None]
  - MUSCLE FATIGUE [None]
  - PRODUCT QUALITY ISSUE [None]
